FAERS Safety Report 7707205-2 (Version None)
Quarter: 2011Q3

REPORT INFORMATION
  Report Type: 
  Country: None (occurrence: None)
  Receive Date: 20110824
  Receipt Date: 20110809
  Transmission Date: 20111222
  Serious: Yes (Other)
  Sender: FDA-Public Use
  Company Number: PHHY2011BR73050

PATIENT
  Sex: Female

DRUGS (5)
  1. ACTOS [Concomitant]
     Indication: TYPE 2 DIABETES MELLITUS
     Dosage: 2 DF, DAILY
     Route: 048
  2. METFORMIN HYDROCHLORIDE [Concomitant]
     Indication: TYPE 2 DIABETES MELLITUS
     Dosage: 2 DF, DAILY
     Route: 048
  3. DIOVAN [Suspect]
     Indication: HYPERTENSION
     Dosage: 1 DF, PER DAY
     Route: 048
  4. SYNTHROID [Concomitant]
     Dosage: 2 DF, DAILY
     Route: 048
  5. PROPAFENONE HCL [Concomitant]
     Indication: TACHYCARDIA
     Dosage: 2 DF, DAILY
     Route: 048

REACTIONS (3)
  - DIZZINESS [None]
  - HYDROCEPHALUS [None]
  - FALL [None]
